FAERS Safety Report 23016471 (Version 2)
Quarter: 2023Q4

REPORT INFORMATION
  Report Type: Spontaneous
  Country: AT (occurrence: AT)
  Receive Date: 20231002
  Receipt Date: 20231012
  Transmission Date: 20240109
  Serious: Yes (Other)
  Sender: FDA-Public Use
  Company Number: AT-ABBVIE-5429969

PATIENT
  Age: 63 Year
  Sex: Female

DRUGS (4)
  1. HUMIRA [Suspect]
     Active Substance: ADALIMUMAB
     Indication: Crohn^s disease
     Route: 058
     Dates: start: 20201119
  2. HUMIRA [Suspect]
     Active Substance: ADALIMUMAB
     Indication: Hidradenitis
     Dosage: STANDARD THERAPY: 160MG-80MG- THEN 40MG EVERY 2 WEEKS
     Route: 058
     Dates: start: 201605
  3. HUMIRA [Suspect]
     Active Substance: ADALIMUMAB
     Route: 058
     Dates: end: 202305
  4. SKYRIZI [Suspect]
     Active Substance: RISANKIZUMAB-RZAA
     Indication: Product used for unknown indication
     Route: 058
     Dates: start: 202309

REACTIONS (18)
  - Hidradenitis [Recovered/Resolved]
  - Haematochezia [Unknown]
  - Weight decreased [Unknown]
  - Hidradenitis [Recovered/Resolved]
  - Blood bilirubin increased [Unknown]
  - Mesenteric vein thrombosis [Unknown]
  - Proctitis [Unknown]
  - Colitis [Unknown]
  - Drug level decreased [Recovered/Resolved]
  - Psoriatic arthropathy [Unknown]
  - Guttate psoriasis [Unknown]
  - Anastomotic complication [Unknown]
  - Drug specific antibody present [Recovered/Resolved]
  - Lymphadenopathy [Unknown]
  - Abdominal pain [Unknown]
  - Mucous stools [Unknown]
  - Hidradenitis [Unknown]
  - Frequent bowel movements [Unknown]

NARRATIVE: CASE EVENT DATE: 20190101
